FAERS Safety Report 16885760 (Version 1)
Quarter: 2019Q4

REPORT INFORMATION
  Report Type: Spontaneous
  Country: US (occurrence: US)
  Receive Date: 20190809
  Receipt Date: 20190809
  Transmission Date: 20200122
  Serious: No
  Sender: FDA-Public Use
  Company Number: None

PATIENT
  Age: 69 Year
  Sex: Female

DRUGS (1)
  1. CAPECITABINE TAB 500MG [Suspect]
     Active Substance: CAPECITABINE
     Dates: start: 201907

REACTIONS (4)
  - Diarrhoea [None]
  - Oropharyngeal pain [None]
  - Cough [None]
  - Constipation [None]

NARRATIVE: CASE EVENT DATE: 20190809
